FAERS Safety Report 16406023 (Version 1)
Quarter: 2019Q2

REPORT INFORMATION
  Report Type: Spontaneous
  Country: US (occurrence: US)
  Receive Date: 20190607
  Receipt Date: 20190607
  Transmission Date: 20190711
  Serious: No
  Sender: FDA-Public Use
  Company Number: US-PFIZER INC-2016536579

PATIENT
  Age: 62 Year
  Sex: Female
  Weight: 80 kg

DRUGS (28)
  1. MAXALT [Concomitant]
     Active Substance: RIZATRIPTAN BENZOATE
     Indication: HEADACHE
     Dosage: 10 MG, AS NEEDED (ONSET OF HEADACHE, MAY REPEAT ONCE IN 2 HOURS IF NEEDED)
     Route: 048
     Dates: start: 20160808
  2. XANAX [Concomitant]
     Active Substance: ALPRAZOLAM
     Dosage: 1 MG, 1X/DAY (NIGHTLY)
     Route: 048
  3. KLOR-CON [Concomitant]
     Active Substance: POTASSIUM CHLORIDE
     Dosage: 20 MEQ, 2X/DAY
     Route: 048
  4. EFFEXOR XR [Concomitant]
     Active Substance: VENLAFAXINE HYDROCHLORIDE
     Dosage: 150 MG, 1X/DAY (AT BEDTIME)
     Route: 048
  5. BIOTIN [Concomitant]
     Active Substance: BIOTIN
     Dosage: UNK, 1X/DAY (QD)
     Route: 048
  6. HYDROMORPHONE [Concomitant]
     Active Substance: HYDROMORPHONE
     Indication: SPINAL OPERATION
     Dosage: 0.12 MG, UNK (PER HOUR)
  7. ROXICODONE [Concomitant]
     Active Substance: OXYCODONE HYDROCHLORIDE
     Indication: PAIN
     Dosage: 5 MG, AS NEEDED (EVERY 6 HOURS AS NEEDED)
     Route: 048
     Dates: start: 20150521, end: 2015
  8. VITAMIN B12 [Concomitant]
     Active Substance: CYANOCOBALAMIN
     Dosage: 500 MG, DAILY
     Route: 048
  9. WELLBUTRIN XL [Concomitant]
     Active Substance: BUPROPION HYDROCHLORIDE
     Dosage: 150 MG, DAILY
     Route: 048
     Dates: start: 20160812
  10. MAG-OX [Concomitant]
     Active Substance: MAGNESIUM OXIDE
     Dosage: 400 MG, DAILY
     Route: 048
  11. LYRICA [Suspect]
     Active Substance: PREGABALIN
     Indication: MIGRAINE
     Dosage: 75 MG, 2X/DAY
     Route: 048
     Dates: start: 20160809, end: 2016
  12. DEMADEX [TORASEMIDE] [Concomitant]
     Dosage: 20 MG, DAILY
     Route: 048
  13. LYRICA [Suspect]
     Active Substance: PREGABALIN
     Dosage: 150 MG, 2X/DAY
     Route: 048
     Dates: start: 20161012
  14. MEDROL [Concomitant]
     Active Substance: METHYLPREDNISOLONE
     Dosage: 4 MG, 2X/DAY
     Route: 048
  15. BROMPHENIRAMINE W/PSEUDOEPHEDRINE [Concomitant]
     Dosage: UNK, 1X/DAY (QD)
     Route: 048
  16. CLARITINE [Concomitant]
     Active Substance: LORATADINE
     Dosage: UNK, AS NEEDED (DAILY AS NEEDED)
     Route: 048
  17. EVENING PRIMROSE OIL [Concomitant]
     Active Substance: EVENING PRIMROSE OIL\HERBALS
     Dosage: UNK, DAILY
     Route: 048
  18. LINZESS [Concomitant]
     Active Substance: LINACLOTIDE
     Dosage: 1 DF, DAILY
     Route: 048
  19. DAZIDOX [Concomitant]
     Indication: PAIN
     Dosage: 10 MG, AS NEEDED (EVERY 4 HOURS AS NEEDED)
     Route: 048
     Dates: start: 20150820
  20. VITAMIN B2 [Concomitant]
     Active Substance: RIBOFLAVIN
     Dosage: 400 MG, DAILY
     Route: 048
  21. ROXICODONE [Concomitant]
     Active Substance: OXYCODONE HYDROCHLORIDE
     Dosage: 5 MG, AS NEEDED (EVERY 4 HOURS AS NEEDED)
     Route: 048
     Dates: start: 20150707
  22. TYLENOL [Concomitant]
     Active Substance: ACETAMINOPHEN
     Dosage: UNK, AS NEEDED
     Route: 048
  23. VITAMIN E-400 [Concomitant]
     Dosage: 400 IU, DAILY
     Route: 048
  24. PROTONIX [Concomitant]
     Active Substance: PANTOPRAZOLE SODIUM
     Dosage: 20 MG, DAILY
     Route: 048
  25. XANAX [Concomitant]
     Active Substance: ALPRAZOLAM
     Dosage: 0.5 MG, AS NEEDED (3 TIMES A DAY AS NEEDED )
     Route: 048
  26. ALEVE [Concomitant]
     Active Substance: NAPROXEN SODIUM
     Dosage: UNK, AS NEEDED (2 TIMES A DAY AS NEEDED)
     Route: 048
  27. DILAUDID [Concomitant]
     Active Substance: HYDROMORPHONE HYDROCHLORIDE
     Dosage: UNK
  28. KEPPRA [Concomitant]
     Active Substance: LEVETIRACETAM
     Dosage: 1500 MG, DAILY (TAKE 3 TABLETS IN THE AM )
     Route: 048
     Dates: start: 20160706

REACTIONS (3)
  - Product use in unapproved indication [Unknown]
  - Visual impairment [Unknown]
  - Off label use [Unknown]

NARRATIVE: CASE EVENT DATE: 20161012
